FAERS Safety Report 5469952-5 (Version None)
Quarter: 2007Q3

REPORT INFORMATION
  Report Type: 
  Country: None (occurrence: None)
  Receive Date: 20070927
  Receipt Date: 20070917
  Transmission Date: 20080115
  Serious: Yes (Other)
  Sender: FDA-Public Use
  Company Number: NL-TYCO HEALTHCARE/MALLINCKRODT-T200701130

PATIENT

DRUGS (1)
  1. LIQUID BAROSPERSE [Suspect]

REACTIONS (7)
  - CARDIAC ARREST [None]
  - CONSTIPATION [None]
  - DEHYDRATION [None]
  - HAEMATEMESIS [None]
  - PERITONITIS [None]
  - RECTAL PERFORATION [None]
  - SEPTIC SHOCK [None]
